FAERS Safety Report 21300950 (Version 7)
Quarter: 2024Q3

REPORT INFORMATION
  Report Type: Spontaneous
  Country: US (occurrence: US)
  Receive Date: 20220907
  Receipt Date: 20240716
  Transmission Date: 20241017
  Serious: Yes (Hospitalization, Other)
  Sender: BIOCODEX
  Company Number: US-BIOCODEX2-2022001171

PATIENT
  Age: 31 Year
  Sex: Male
  Weight: 92.1 kg

DRUGS (16)
  1. DIACOMIT [Suspect]
     Active Substance: STIRIPENTOL
     Indication: Idiopathic generalised epilepsy
     Dosage: 500 MG AND 750 MG BY MOUTH IN ?TWO SEPARATE DOSES EACH DAY
     Route: 048
  2. DIACOMIT [Suspect]
     Active Substance: STIRIPENTOL
     Indication: Idiopathic generalised epilepsy
     Dosage: 250 MG BY MOUTH TWICE DAILY
     Route: 048
     Dates: start: 2021
  3. DIACOMIT [Suspect]
     Active Substance: STIRIPENTOL
     Indication: Idiopathic generalised epilepsy
     Dosage: 250MG BY MOUTH TWICE DAILY
     Route: 048
  4. DIACOMIT [Suspect]
     Active Substance: STIRIPENTOL
     Indication: Idiopathic generalised epilepsy
     Dosage: 750MG BY MOUTH TWICE DAILY
     Route: 048
  5. DIACOMIT [Suspect]
     Active Substance: STIRIPENTOL
     Indication: Idiopathic generalised epilepsy
     Dosage: 1 CAPSULE BY MOUTH THREE TIMES A DAY
     Route: 048
  6. DIACOMIT [Suspect]
     Active Substance: STIRIPENTOL
     Indication: Idiopathic generalised epilepsy
     Dosage: 750 MG BY MOUTH THREE TIMES DAILY, UTILIZING BOTH THE DIACOMIT 500 AND 250MG CAPSULES.
  7. DIACOMIT [Suspect]
     Active Substance: STIRIPENTOL
     Indication: Idiopathic generalised epilepsy
     Dosage: 500MG TWICE A DAY
     Dates: start: 20220909
  8. DIACOMIT [Suspect]
     Active Substance: STIRIPENTOL
     Indication: Idiopathic generalised epilepsy
     Dosage: 500 MG AND 750 MG BY MOUTH IN TWO SEPARATE DOSES/DAY
  9. CLOBAZAM [Concomitant]
     Active Substance: CLOBAZAM
     Indication: Seizure
     Dosage: 20MG TWICE DAILY
     Route: 048
     Dates: start: 200602
  10. FLONASE (OTC) [Concomitant]
     Indication: Seasonal allergy
     Dosage: 50MCG PER SPRAY
     Route: 045
     Dates: start: 200706
  11. MELATONIN [Concomitant]
     Active Substance: MELATONIN
     Indication: Insomnia
     Dosage: 5MG DAILY
     Route: 048
     Dates: start: 202002
  12. NAYZILAM [Concomitant]
     Active Substance: MIDAZOLAM
     Indication: Seizure
     Dosage: 2.5MCG AS NEEDED
     Route: 045
     Dates: start: 201510
  13. vitamin D3 (SYN) [Concomitant]
     Indication: Bone density abnormal
     Dosage: 1000MG DAILY
     Route: 048
     Dates: start: 200602
  14. BENADRYL [Concomitant]
     Active Substance: DIPHENHYDRAMINE HYDROCHLORIDE
     Indication: Seasonal allergy
     Dosage: 25MG DAILY
     Route: 048
     Dates: start: 201903
  15. NEXIUM [Concomitant]
     Active Substance: ESOMEPRAZOLE MAGNESIUM
     Indication: Product used for unknown indication
     Route: 065
  16. MIDAZOLAM [Concomitant]
     Active Substance: MIDAZOLAM
     Indication: Product used for unknown indication
     Route: 065

REACTIONS (8)
  - Seizure [Unknown]
  - Decreased appetite [Unknown]
  - Insomnia [Recovered/Resolved]
  - Balance disorder [Unknown]
  - Condition aggravated [Unknown]
  - Weight decreased [Not Recovered/Not Resolved]
  - Dehydration [Unknown]
  - Product use in unapproved indication [Unknown]

NARRATIVE: CASE EVENT DATE: 20220909
